FAERS Safety Report 4898437-X (Version None)
Quarter: 2006Q1

REPORT INFORMATION
  Report Type: 
  Country: None (occurrence: None)
  Receive Date: 20060130
  Receipt Date: 20060116
  Transmission Date: 20060701
  Serious: Yes (Other)
  Sender: FDA-Public Use
  Company Number: 2006009434

PATIENT
  Age: 66 Year
  Sex: Male
  Weight: 90 kg

DRUGS (9)
  1. LYRICA [Suspect]
     Indication: URAEMIC NEUROPATHY
     Dosage: 50 MG (25 MG, 2 IN 1 D), ORAL
     Route: 048
     Dates: start: 20050707, end: 20060106
  2. TRAMADOL HCL [Concomitant]
  3. RESTEX (BENSERAZIDE  HYDROCHLORIDE, LEVODOPA) [Concomitant]
  4. CARVEDILOL [Concomitant]
  5. ACETYLSALICYLIC ACID SRT [Concomitant]
  6. PANTOPRAZOLE SODIUM [Concomitant]
  7. LOCOL (FLUVASTATIN SODIUM) [Concomitant]
  8. CALCIUM ACETATE (CALCIUM ACETATE) [Concomitant]
  9. HYDROCORTISONE [Concomitant]

REACTIONS (1)
  - DIPLEGIA [None]
